FAERS Safety Report 23481660 (Version 1)
Quarter: 2024Q1

REPORT INFORMATION
  Report Type: Spontaneous
  Country: US (occurrence: None)
  Receive Date: 20240204
  Receipt Date: 20240204
  Transmission Date: 20240410
  Serious: Yes (Death, Hospitalization)
  Sender: FDA-Public Use
  Company Number: None

PATIENT
  Age: 67 Year
  Sex: Male
  Weight: 76.2 kg

DRUGS (5)
  1. CYCLOPHOSPHAMIDE [Suspect]
     Active Substance: CYCLOPHOSPHAMIDE
     Dates: end: 20240119
  2. SPRYCEL [Suspect]
     Active Substance: DASATINIB
     Dates: end: 20240129
  3. DEXAMETHASONE [Suspect]
     Active Substance: DEXAMETHASONE
     Dates: end: 20240129
  4. DOXORUBICIN HYDROCHLORIDE [Suspect]
     Active Substance: DOXORUBICIN HYDROCHLORIDE
     Dates: end: 20240129
  5. VINCRISTINE SULFATE [Suspect]
     Active Substance: VINCRISTINE SULFATE
     Dates: end: 20240129

REACTIONS (7)
  - Chest discomfort [None]
  - Dyspnoea [None]
  - Unresponsive to stimuli [None]
  - Pulse absent [None]
  - Areflexia [None]
  - Hypoxia [None]
  - Lung consolidation [None]

NARRATIVE: CASE EVENT DATE: 20240129
